FAERS Safety Report 9171131 (Version 1)
Quarter: 2013Q1

REPORT INFORMATION
  Report Type: Spontaneous
  Country: US (occurrence: None)
  Receive Date: 20130312
  Receipt Date: 20130312
  Transmission Date: 20140127
  Serious: Yes (Hospitalization)
  Sender: FDA-Public Use
  Company Number: IMP_06687_2013

PATIENT
  Age: 23 Month
  Sex: Male

DRUGS (1)
  1. BACLOFEN [Suspect]
     Indication: PRODUCT USED FOR UNKNOWN INDICATION
     Dosage: ([NOT THE PRESCRIBED AMOUNT] ORAL)

REACTIONS (7)
  - Fall [None]
  - Head injury [None]
  - Crying [None]
  - Unresponsive to stimuli [None]
  - Hypotonia [None]
  - Brain death [None]
  - Toxicity to various agents [None]
